FAERS Safety Report 4299129-0 (Version None)
Quarter: 2004Q1

REPORT INFORMATION
  Report Type: 
  Country: None (occurrence: None)
  Receive Date: 20040217
  Receipt Date: 20040204
  Transmission Date: 20041129
  Serious: Yes (Hospitalization)
  Sender: FDA-Public Use
  Company Number: 204225

PATIENT
  Age: 49 Year
  Sex: Female

DRUGS (7)
  1. HERCEPTIN [Suspect]
     Indication: BREAST CANCER
     Dosage: 240 MG, SINGLE, INTRAVENOUS
     Route: 042
     Dates: start: 20031211, end: 20031211
  2. TAXOTERE [Suspect]
     Indication: BREAST CANCER
     Dosage: 153.3 MG, Q3W, INTRAVENOUS
     Route: 042
     Dates: start: 20030915
  3. ZANTAC [Concomitant]
  4. ONDANSETRON HCL [Concomitant]
  5. DEXAMETHASONE [Concomitant]
  6. RANITIDINE [Concomitant]
  7. POLARMINE (DEXCHLOROPHENIRAMINE MALEATE) [Concomitant]

REACTIONS (2)
  - NEUTROPENIA [None]
  - PYREXIA [None]
